FAERS Safety Report 8406227-6 (Version None)
Quarter: 2012Q2

REPORT INFORMATION
  Report Type: 
  Country: None (occurrence: None)
  Receive Date: 20120323
  Receipt Date: 20110729
  Transmission Date: 20120825
  Serious: Yes (Hospitalization)
  Sender: FDA-Public Use
  Company Number: 163-21880-11052486

PATIENT
  Age: 84 Year
  Sex: Female

DRUGS (12)
  1. CELEBREX [Concomitant]
  2. DILTIAZEM [Concomitant]
  3. ALBUTEROL [Concomitant]
  4. ZOLOFT [Concomitant]
  5. ATIVAN [Concomitant]
  6. LIBRIUM [Concomitant]
  7. PERCOCET [Concomitant]
  8. REVLIMID [Suspect]
     Indication: MULTIPLE MYELOMA
     Dosage: 25 MG, DAILY 21/28, PO
     Route: 048
     Dates: start: 20110316, end: 20110501
  9. TERAZOSIN HCL [Concomitant]
  10. PRAVACHOL [Concomitant]
  11. LUNESTA [Concomitant]
  12. DIOVAN [Concomitant]

REACTIONS (2)
  - HAEMOGLOBIN DECREASED [None]
  - DEHYDRATION [None]
